FAERS Safety Report 12301198 (Version 2)
Quarter: 2016Q2

REPORT INFORMATION
  Report Type: Spontaneous
  Country: GB (occurrence: GB)
  Receive Date: 20160425
  Receipt Date: 20160512
  Transmission Date: 20160815
  Serious: Yes (Life-Threatening, Other)
  Sender: FDA-Public Use
  Company Number: GB-WATSON-2016-07759

PATIENT
  Age: 38 Year
  Sex: Female

DRUGS (1)
  1. LEVONORGESTREL (UNKNOWN) [Suspect]
     Active Substance: LEVONORGESTREL
     Indication: POST COITAL CONTRACEPTION
     Dosage: UNK; 0.75 MG TABLET
     Route: 048

REACTIONS (2)
  - Premenstrual syndrome [Recovered/Resolved]
  - Suicidal ideation [Recovered/Resolved]
